FAERS Safety Report 15596985 (Version 1)
Quarter: 2018Q4

REPORT INFORMATION
  Report Type: Report from Study
  Country: IT (occurrence: IT)
  Receive Date: 20181108
  Receipt Date: 20181108
  Transmission Date: 20190205
  Serious: Yes (Hospitalization)
  Sender: FDA-Public Use
  Company Number: IT-TEVA-2018-IT-973624

PATIENT
  Age: 51 Year
  Sex: Female

DRUGS (4)
  1. QUETIAPINA TEVA ITALIA 300 MG, COMPRESSE A RILASCIO PROLUNGATO [Suspect]
     Active Substance: QUETIAPINE FUMARATE
     Indication: INTENTIONAL PRODUCT USE ISSUE
     Route: 048
     Dates: start: 20180912, end: 20180912
  2. LEXOTAN 2,5 MG/ML GOCCE ORALI SOLUZIONE [Suspect]
     Active Substance: BROMAZEPAM
     Indication: INTENTIONAL PRODUCT USE ISSUE
     Route: 048
     Dates: start: 20180912, end: 20180912
  3. QUETIAPINA AHCL 200 MG COMPRESSE RIVESTITE CON FILM [Suspect]
     Active Substance: QUETIAPINE
     Indication: INTENTIONAL PRODUCT USE ISSUE
     Route: 048
     Dates: start: 20180912, end: 20180912
  4. DEPAKIN 500 MG COMPRESSE GASTRORESISTENTI [Suspect]
     Active Substance: VALPROATE SODIUM
     Indication: INTENTIONAL PRODUCT USE ISSUE
     Route: 048
     Dates: start: 20180912, end: 20180912

REACTIONS (4)
  - Sopor [Recovered/Resolved]
  - Bradyphrenia [Recovered/Resolved]
  - Hypokinesia [Recovered/Resolved]
  - Loss of consciousness [Recovered/Resolved]

NARRATIVE: CASE EVENT DATE: 20180912
